FAERS Safety Report 6673125-8 (Version None)
Quarter: 2010Q2

REPORT INFORMATION
  Report Type: 
  Country: None (occurrence: None)
  Receive Date: 20100408
  Receipt Date: 20100331
  Transmission Date: 20101027
  Serious: Yes (Hospitalization)
  Sender: FDA-Public Use
  Company Number: US-ELI_LILLY_AND_COMPANY-US201003007329

PATIENT
  Sex: Female
  Weight: 111.11 kg

DRUGS (8)
  1. BYETTA [Suspect]
     Indication: TYPE 2 DIABETES MELLITUS
     Dosage: 5 UG, 2/D
     Route: 058
     Dates: start: 20050101, end: 20070101
  2. BYETTA [Suspect]
     Dosage: 10 UG, 2/D
     Route: 058
     Dates: start: 20070101
  3. BYETTA [Suspect]
     Dosage: 5 UG, DAILY (1/D)
     Route: 058
     Dates: start: 20100325, end: 20100327
  4. BYETTA [Suspect]
     Dosage: 5 UG, 2/D
     Route: 058
     Dates: start: 20100327
  5. ALTACE [Concomitant]
     Indication: CARDIAC DISORDER
  6. LIPITOR [Concomitant]
  7. ALLEGRA [Concomitant]
  8. VITAMINS [Concomitant]

REACTIONS (8)
  - ARTHRITIS [None]
  - BLOOD GLUCOSE DECREASED [None]
  - BLOOD GLUCOSE INCREASED [None]
  - CONFUSIONAL STATE [None]
  - DEPRESSED MOOD [None]
  - DIARRHOEA [None]
  - DRUG DOSE OMISSION [None]
  - NAUSEA [None]
